FAERS Safety Report 10029641 (Version 1)
Quarter: 2014Q1

REPORT INFORMATION
  Report Type: Spontaneous
  Country: US (occurrence: None)
  Receive Date: 20140320
  Receipt Date: 20140320
  Transmission Date: 20141002
  Serious: Yes (Life-Threatening, Hospitalization)
  Sender: FDA-Public Use
  Company Number: None

PATIENT
  Age: 50 Year
  Sex: Female
  Weight: 44.68 kg

DRUGS (13)
  1. ELOSULPASE ALPHA (VIMIZIM) [Suspect]
     Indication: MUCOPOLYSACCHARIDOSIS IV
     Route: 042
     Dates: start: 20131001, end: 20140318
  2. HYDROCODONE/ACETAMINOPHEN [Concomitant]
  3. ONDANSETRON [Concomitant]
  4. CETIRIZINE [Concomitant]
  5. TRAMADOL [Concomitant]
  6. OMEPRAZOLE [Concomitant]
  7. CELECOXIB [Concomitant]
  8. IBUPROFEN [Concomitant]
  9. DULOXETINE [Concomitant]
  10. GABAPENTIN [Concomitant]
  11. LORAZEPAM [Concomitant]
  12. TOPIRAMATE [Concomitant]
  13. ETHINYL ESTRADIOL/ETHYNODIOL [Concomitant]

REACTIONS (6)
  - Infusion related reaction [None]
  - Dyspnoea [None]
  - Wheezing [None]
  - Chest pain [None]
  - Chills [None]
  - Oxygen saturation decreased [None]
